FAERS Safety Report 7301698-0 (Version None)
Quarter: 2011Q1

REPORT INFORMATION
  Report Type: 
  Country: None (occurrence: None)
  Receive Date: 20110218
  Receipt Date: 20110217
  Transmission Date: 20110831
  Serious: Yes (Other)
  Sender: FDA-Public Use
  Company Number: A0914150A

PATIENT
  Age: 82 Year
  Sex: Female

DRUGS (1)
  1. NICORETTE [Suspect]
     Indication: DRUG WITHDRAWAL MAINTENANCE THERAPY
     Route: 002
     Dates: start: 20110214

REACTIONS (3)
  - DRUG ADMINISTRATION ERROR [None]
  - VISUAL IMPAIRMENT [None]
  - HALLUCINATION [None]
